FAERS Safety Report 6613558-9 (Version None)
Quarter: 2010Q1

REPORT INFORMATION
  Report Type: 
  Country: None (occurrence: None)
  Receive Date: 20100225
  Receipt Date: 20100212
  Transmission Date: 20100710
  Serious: Yes (Life-Threatening)
  Sender: FDA-Public Use
  Company Number: 1000007006

PATIENT
  Age: 30 Year
  Sex: Male

DRUGS (2)
  1. LEXAPRO [Suspect]
     Dosage: 5 MG (5 MG, 1 IN 1 D), ORAL
     Route: 048
     Dates: start: 20070705, end: 20070701
  2. XANAX [Suspect]
     Dosage: 0.75 MG (0.25 MG,3 IN 1 D), ORAL
     Route: 048
     Dates: start: 20070706

REACTIONS (7)
  - ABNORMAL BEHAVIOUR [None]
  - GENERAL PHYSICAL HEALTH DETERIORATION [None]
  - GUN SHOT WOUND [None]
  - MENTAL IMPAIRMENT [None]
  - SUICIDAL IDEATION [None]
  - SUICIDE ATTEMPT [None]
  - TINNITUS [None]
